FAERS Safety Report 4282056-2 (Version None)
Quarter: 2004Q1

REPORT INFORMATION
  Report Type: 
  Country: None (occurrence: None)
  Receive Date: 20040128
  Receipt Date: 20040119
  Transmission Date: 20041129
  Serious: Yes (Hospitalization)
  Sender: FDA-Public Use
  Company Number: 2004-BP-00360MX

PATIENT
  Age: 74 Year
  Sex: Male

DRUGS (2)
  1. SECOTEX CAPSULES 0.4 MG (KA) (TAMSULOSIN HYDROCHLORIDE) [Suspect]
     Indication: BENIGN PROSTATIC HYPERPLASIA
     Dosage: 0.4 MG (0.4 MG, 1 KA OD) PO
     Route: 048
     Dates: start: 20030730, end: 20030831
  2. CAPTOPRIL [Concomitant]

REACTIONS (2)
  - DRUG INEFFECTIVE [None]
  - URINARY RETENTION [None]
